FAERS Safety Report 4894905-5 (Version None)
Quarter: 2006Q1

REPORT INFORMATION
  Report Type: 
  Country: None (occurrence: None)
  Receive Date: 20060130
  Receipt Date: 20050214
  Transmission Date: 20060701
  Serious: No
  Sender: FDA-Public Use
  Company Number: US-BRISTOL-MYERS SQUIBB COMPANY-12861910

PATIENT
  Age: 69 Year
  Sex: Female
  Weight: 59 kg

DRUGS (1)
  1. GLUCOPHAGE [Suspect]
     Indication: GLUCOSE TOLERANCE IMPAIRED

REACTIONS (1)
  - ABDOMINAL PAIN UPPER [None]
